FAERS Safety Report 4832834-3 (Version None)
Quarter: 2005Q4

REPORT INFORMATION
  Report Type: 
  Country: None (occurrence: None)
  Receive Date: 20051121
  Receipt Date: 20050914
  Transmission Date: 20060501
  Serious: Yes (Life-Threatening, Hospitalization)
  Sender: FDA-Public Use
  Company Number: US-MERCK-0509USA01823

PATIENT
  Age: 53 Year
  Sex: Male
  Weight: 93 kg

DRUGS (5)
  1. VIOXX [Suspect]
     Indication: INTERVERTEBRAL DISC DEGENERATION
     Route: 048
     Dates: start: 20030101, end: 20050801
  2. VIOXX [Suspect]
     Indication: MYALGIA
     Route: 048
     Dates: start: 20030101, end: 20050801
  3. ZANTAC [Concomitant]
     Route: 065
  4. PROZAC [Concomitant]
     Route: 065
  5. MICARDIS [Concomitant]
     Route: 065

REACTIONS (5)
  - CORONARY ARTERY DISEASE [None]
  - HYPERTENSIVE HEART DISEASE [None]
  - MYOCARDIAL INFARCTION [None]
  - SKIN LESION [None]
  - VENTRICULAR ARRHYTHMIA [None]
